FAERS Safety Report 7629224-7 (Version None)
Quarter: 2011Q3

REPORT INFORMATION
  Report Type: 
  Country: None (occurrence: None)
  Receive Date: 20110722
  Receipt Date: 20110715
  Transmission Date: 20111222
  Serious: Yes (Other)
  Sender: FDA-Public Use
  Company Number: US-SANOFI-AVENTIS-2011SA030428

PATIENT
  Age: 54 Year
  Sex: Female
  Weight: 91.62 kg

DRUGS (3)
  1. SOLOSTAR [Suspect]
     Indication: DIABETES MELLITUS
     Dates: start: 20090101
  2. INSULIN DETEMIR [Concomitant]
  3. APIDRA [Suspect]
     Indication: DIABETES MELLITUS
     Dosage: AT LEAST 3 TIMES A DAY ON A SLIDING SCALE
     Route: 058
     Dates: start: 20090101

REACTIONS (3)
  - HYPERGLYCAEMIA [None]
  - DIABETES MELLITUS INADEQUATE CONTROL [None]
  - HYPOGLYCAEMIA [None]
